FAERS Safety Report 10114499 (Version 3)
Quarter: 2014Q2

REPORT INFORMATION
  Report Type: Report from Study
  Country: DE (occurrence: DE)
  Receive Date: 20140426
  Receipt Date: 20140502
  Transmission Date: 20141212
  Serious: Yes (Hospitalization)
  Sender: FDA-Public Use
  Company Number: DE-ROCHE-1213185

PATIENT
  Age: 55 Year
  Sex: Female
  Weight: 85 kg

DRUGS (13)
  1. TOCILIZUMAB [Suspect]
     Indication: RHEUMATOID ARTHRITIS
     Dosage: 8MG/KG
     Route: 042
     Dates: start: 20120419, end: 20121206
  2. TOCILIZUMAB [Suspect]
     Route: 042
     Dates: start: 20130314, end: 20140318
  3. PREDNISOLON [Suspect]
     Indication: RHEUMATOID ARTHRITIS
     Route: 048
     Dates: start: 20050301
  4. PREDNISOLON [Suspect]
     Route: 048
     Dates: start: 200503
  5. PREDNISOLON [Suspect]
     Route: 048
  6. MELOXICAM [Concomitant]
     Dosage: AS REQUIRED
     Route: 048
  7. TICLOPIDINE [Concomitant]
     Route: 065
     Dates: start: 200507
  8. PANTOZOL (GERMANY) [Concomitant]
     Route: 065
  9. CALCILAC (GERMANY) [Concomitant]
     Route: 065
     Dates: start: 200507
  10. NEBIVOLOL [Concomitant]
  11. SIMVASTATIN [Concomitant]
     Dosage: 10
     Route: 065
     Dates: end: 200905
  12. TRAMADURA [Concomitant]
     Route: 065
     Dates: start: 200905
  13. CANDESARTAN [Concomitant]
     Indication: HYPERTENSION

REACTIONS (2)
  - Diverticulitis [Recovered/Resolved]
  - Large intestine perforation [Recovered/Resolved]
